FAERS Safety Report 7712816-4 (Version None)
Quarter: 2011Q3

REPORT INFORMATION
  Report Type: 
  Country: None (occurrence: None)
  Receive Date: 20110826
  Receipt Date: 20110818
  Transmission Date: 20111222
  Serious: Yes (Other)
  Sender: FDA-Public Use
  Company Number: PHHY2011CA74374

PATIENT

DRUGS (1)
  1. CLOZAPINE [Suspect]

REACTIONS (2)
  - SKIN DISCOLOURATION [None]
  - WEIGHT DECREASED [None]
